FAERS Safety Report 20244842 (Version 2)
Quarter: 2022Q1

REPORT INFORMATION
  Report Type: Spontaneous
  Country: US (occurrence: US)
  Receive Date: 20211229
  Receipt Date: 20220106
  Transmission Date: 20220423
  Serious: Yes (Other)
  Sender: FDA-Public Use
  Company Number: US-SUN PHARMACEUTICAL INDUSTRIES LTD-2021R1-321887

PATIENT
  Age: 32 Year
  Sex: Female

DRUGS (9)
  1. DEXAMETHASONE [Suspect]
     Active Substance: DEXAMETHASONE
     Indication: Chemotherapy
     Dosage: 40 MILLIGRAM, DAILY ON DAY 2-4
     Route: 065
  2. METHOTREXATE [Suspect]
     Active Substance: METHOTREXATE
     Indication: Chemotherapy
     Dosage: 2 G/MG, UNK
     Route: 048
  3. GRANULOCYTE COLONY-STIMULATING FACTOR NOS [Suspect]
     Active Substance: GRANULOCYTE COLONY-STIMULATING FACTOR NOS
     Indication: Chemotherapy
     Dosage: UNK
     Route: 065
  4. LEUCOVORIN CALCIUM [Suspect]
     Active Substance: LEUCOVORIN CALCIUM
     Indication: Chemotherapy
     Dosage: 15 MILLIGRAM, QID ON DAY 2-4
     Route: 042
  5. BRENTUXIMAB [Suspect]
     Active Substance: BRENTUXIMAB
     Indication: Chemotherapy
     Dosage: 1.8 MILLIGRAM/KILOGRAM EVERY 3 WEEKS
     Route: 065
     Dates: start: 201910
  6. ETOPOSIDE [Suspect]
     Active Substance: ETOPOSIDE
     Indication: Chemotherapy
     Dosage: 100 MILLIGRAM/SQ. METER ON DAY 2-4
     Route: 042
  7. IFOSFAMIDE [Suspect]
     Active Substance: IFOSFAMIDE
     Indication: Chemotherapy
     Dosage: 1500 MILLIGRAM/SQ. METER ON DAY 2-4
     Route: 042
  8. ASPARAGINASE [Suspect]
     Active Substance: ASPARAGINASE
     Indication: Chemotherapy
     Dosage: 6000 U/M2 ON DAYS 8, 10, 12, 14, 16, 18, AND 20
     Route: 030
  9. MESNA [Suspect]
     Active Substance: MESNA
     Indication: Chemotherapy
     Dosage: 300 MILLIGRAM/SQ. METER, QD ON DAY 2-4
     Route: 042

REACTIONS (3)
  - Therapy non-responder [Unknown]
  - Neutropenia [Unknown]
  - Thrombocytopenia [Unknown]
